FAERS Safety Report 16594380 (Version 1)
Quarter: 2019Q3

REPORT INFORMATION
  Report Type: Other
  Country: US (occurrence: US)
  Receive Date: 20190718
  Receipt Date: 20190718
  Transmission Date: 20191004
  Serious: No
  Sender: FDA-Public Use
  Company Number: US-SWEDISH ORPHAN BIOVITRUM-2019US0073

PATIENT
  Sex: Female

DRUGS (11)
  1. METHIMAZOLE. [Concomitant]
     Active Substance: METHIMAZOLE
  2. KINERET [Suspect]
     Active Substance: ANAKINRA
     Route: 058
  3. CLONIDINE. [Concomitant]
     Active Substance: CLONIDINE
  4. OMEPRAZOLE. [Concomitant]
     Active Substance: OMEPRAZOLE
  5. KINERET [Suspect]
     Active Substance: ANAKINRA
     Route: 058
  6. BUTRAN PAIN PATCH [Concomitant]
  7. ROSUVASTATIN. [Concomitant]
     Active Substance: ROSUVASTATIN
  8. HYDROCODONE [Concomitant]
     Active Substance: HYDROCODONE
  9. LOSARTAN. [Concomitant]
     Active Substance: LOSARTAN
  10. PROPRANOLOL [Concomitant]
     Active Substance: PROPRANOLOL HYDROCHLORIDE
  11. HYDROCHLOROTHIAZIDE. [Concomitant]
     Active Substance: HYDROCHLOROTHIAZIDE

REACTIONS (2)
  - Swelling [Unknown]
  - Pruritus [Unknown]

NARRATIVE: CASE EVENT DATE: 2018
